FAERS Safety Report 15376898 (Version 2)
Quarter: 2020Q3

REPORT INFORMATION
  Report Type: Other
  Country: US (occurrence: US)
  Receive Date: 20180913
  Receipt Date: 20200816
  Transmission Date: 20201102
  Serious: Yes (Death, Other)
  Sender: FDA-Public Use
  Company Number: US-ROCHE-2184113

PATIENT
  Age: 36 Year
  Sex: Female

DRUGS (3)
  1. BENADRYL [Concomitant]
     Active Substance: DIPHENHYDRAMINE HYDROCHLORIDE
     Route: 042
     Dates: start: 20180115, end: 20180208
  2. ZOFRON [ONDANSETRON] [Concomitant]
     Dosage: 4 MG/ 2ML VIAL
     Route: 042
     Dates: start: 20180115, end: 20180208
  3. RITUXAN [Suspect]
     Active Substance: RITUXIMAB
     Indication: INTRADUCTAL PROLIFERATIVE BREAST LESION
     Route: 042
     Dates: start: 20171211, end: 20180825

REACTIONS (4)
  - Intentional product use issue [Fatal]
  - Off label use [Fatal]
  - Death [Fatal]
  - Bacterial infection [Unknown]

NARRATIVE: CASE EVENT DATE: 20180825
